FAERS Safety Report 21766151 (Version 1)
Quarter: 2022Q4

REPORT INFORMATION
  Report Type: Report from Study
  Country: ES (occurrence: ES)
  Receive Date: 20221222
  Receipt Date: 20221222
  Transmission Date: 20230113
  Serious: Yes (Hospitalization)
  Sender: FDA-Public Use
  Company Number: None

PATIENT
  Age: 21 Year
  Sex: Male

DRUGS (7)
  1. FENTANYL [Suspect]
     Active Substance: FENTANYL
     Indication: Sedation
     Dosage: 0.75MG IN PC || DOSE UNIT FREQUENCY: 0.75 MG-MILLIGRAMS || DOSE PER DOSE: 0.75 MG-MILLIGRAMS || NUMB
     Route: 065
     Dates: start: 20141104, end: 20141111
  2. PROPOFOL [Suspect]
     Active Substance: PROPOFOL
     Indication: Sedation
     Dosage: 1 GR ON PC || DOSE UNIT FREQUENCY: 1 G-GRAMS || DOSE PER SHOT: 1 G-GRAMS || NUMBER OF SHOTS PER FREQ
     Route: 065
     Dates: start: 20141104, end: 20141111
  3. CLOXACILLIN [Concomitant]
     Active Substance: CLOXACILLIN
     Indication: Product used for unknown indication
     Dosage: 2GR/4H || DOSE UNIT FREQUENCY: 12 G-GRAMS || DOSE PER DOSE: 2 G-GRAMS || NUMBER OF SOCKETS PER FREQU
     Route: 065
     Dates: start: 20141106, end: 20141108
  4. PANTOPRAZOLE SODIUM [Concomitant]
     Active Substance: PANTOPRAZOLE SODIUM
     Indication: Product used for unknown indication
     Dosage: 1 AMP || DOSE UNIT FREQUENCY: 40 MG-MILLIGRAMS || DOSE PER DOSE: 40 MG-MILLIGRAMS || NUMBER OF SHOTS
     Route: 065
     Dates: start: 20141027
  5. ACETAMINOPHEN [Concomitant]
     Active Substance: ACETAMINOPHEN
     Indication: Pain
     Dosage: 1GR/8H || DOSE UNIT FREQUENCY: 3 G-GRAMS || DOSE PER SHOT: 1 G-GRAMS || NUMBER OF SHOTS PER FREQUENC
     Route: 065
     Dates: start: 20141027
  6. VANCOMYCIN [Concomitant]
     Active Substance: VANCOMYCIN
     Indication: Product used for unknown indication
     Dosage: 1GR/12H || DOSE UNIT FREQUENCY: 2 G-GRAMS || DOSE PER SHOT: 1 G-GRAMS || NUMBER OF SHOTS PER FREQUEN
     Route: 065
     Dates: start: 20141101
  7. ENOXAPARIN [Concomitant]
     Active Substance: ENOXAPARIN
     Indication: Prophylaxis
     Dosage: 1 AMP || DOSE UNIT FREQUENCY: 40 MG-MILLIGRAMS || DOSE PER DOSE: 40 MG-MILLIGRAMS || NUMBER OF SHOTS
     Route: 065
     Dates: start: 20141027

REACTIONS (1)
  - Mixed liver injury [Recovering/Resolving]

NARRATIVE: CASE EVENT DATE: 20141111
